FAERS Safety Report 8352391-7 (Version None)
Quarter: 2012Q2

REPORT INFORMATION
  Report Type: 
  Country: None (occurrence: None)
  Receive Date: 20120511
  Receipt Date: 20120504
  Transmission Date: 20120825
  Serious: Yes (Hospitalization)
  Sender: FDA-Public Use
  Company Number: FR-UCBSA-056831

PATIENT
  Age: 71 Year
  Sex: Male

DRUGS (4)
  1. MODOPAR [Suspect]
     Dosage: UNKNOWN DOSE
     Route: 048
  2. TASMAR [Suspect]
     Indication: PARKINSON'S DISEASE
     Route: 048
     Dates: start: 20111201, end: 20120319
  3. NEUPRO [Suspect]
     Dosage: UNKNOWN DOSE
     Route: 062
  4. ACETAMINOPHEN [Concomitant]
     Dosage: UNKNOWN DOSE

REACTIONS (4)
  - AGGRESSION [None]
  - ABNORMAL BEHAVIOUR [None]
  - IRRITABILITY [None]
  - CONFUSIONAL STATE [None]
